FAERS Safety Report 13450035 (Version 1)
Quarter: 2017Q2

REPORT INFORMATION
  Report Type: Spontaneous
  Country: US (occurrence: US)
  Receive Date: 20170417
  Receipt Date: 20170417
  Transmission Date: 20170830
  Serious: No
  Sender: FDA-Public Use
  Company Number: US-BION-20160526

PATIENT
  Age: 63 Year
  Sex: Female
  Weight: 136.08 kg

DRUGS (3)
  1. CARBAMAZEPINE. [Concomitant]
     Active Substance: CARBAMAZEPINE
  2. ALEVE [Suspect]
     Active Substance: NAPROXEN SODIUM
     Indication: ARTHRALGIA
     Dosage: 1 IN THE MORNING 2 AT NIGHT
     Route: 048
  3. DILANTIN [Concomitant]
     Active Substance: PHENYTOIN

REACTIONS (2)
  - Incorrect drug administration duration [Unknown]
  - Incorrect dose administered [Unknown]
